FAERS Safety Report 15517310 (Version 1)
Quarter: 2018Q4

REPORT INFORMATION
  Report Type: Spontaneous
  Country: NL (occurrence: NL)
  Receive Date: 20181017
  Receipt Date: 20181017
  Transmission Date: 20190205
  Serious: Yes (Other)
  Sender: FDA-Public Use
  Company Number: NL-PROVELL PHARMACEUTICALS-2056290

PATIENT
  Age: 29 Year
  Sex: Female
  Weight: 56 kg

DRUGS (1)
  1. EUTHYROX [Suspect]
     Active Substance: LEVOTHYROXINE SODIUM
     Indication: HYPOTHYROIDISM
     Dates: start: 201807

REACTIONS (6)
  - Headache [Recovering/Resolving]
  - Depressed mood [Recovering/Resolving]
  - Irritability [Recovering/Resolving]
  - Skin discolouration [Recovering/Resolving]
  - Therapeutic response unexpected [Recovering/Resolving]
  - Infertility female [Recovering/Resolving]

NARRATIVE: CASE EVENT DATE: 201807
